FAERS Safety Report 8299424-4 (Version None)
Quarter: 2012Q2

REPORT INFORMATION
  Report Type: 
  Country: None (occurrence: None)
  Receive Date: 20120419
  Receipt Date: 20120413
  Transmission Date: 20120825
  Serious: Yes (Hospitalization)
  Sender: FDA-Public Use
  Company Number: FR-BRACCO-000811

PATIENT
  Sex: Male

DRUGS (2)
  1. IOPAMIDOL [Suspect]
     Indication: UROGRAM
     Route: 042
     Dates: start: 20120116, end: 20120116
  2. IOPAMIDOL [Suspect]
     Indication: PYELOCALIECTASIS
     Route: 042
     Dates: start: 20120116, end: 20120116

REACTIONS (1)
  - ANGIOEDEMA [None]
